FAERS Safety Report 16842546 (Version 1)
Quarter: 2019Q3

REPORT INFORMATION
  Report Type: Spontaneous
  Country: AU (occurrence: AU)
  Receive Date: 20190924
  Receipt Date: 20190924
  Transmission Date: 20191005
  Serious: Yes (Hospitalization, Other)
  Sender: FDA-Public Use
  Company Number: AU-CIPLA LTD.-2019AU06460

PATIENT

DRUGS (8)
  1. FLUOROURACIL. [Suspect]
     Active Substance: FLUOROURACIL
     Dosage: 2500 MILLIGRAM/SQ. METER, IV INFUSION OVER 46 HOURS, EVERY TWO WEEKS FOR 4 MONTHS, FOLFIRI REGIMEN
  2. LEUCOVORIN CA [Suspect]
     Active Substance: LEUCOVORIN CALCIUM
     Indication: COLORECTAL CANCER METASTATIC
     Dosage: 50 MILLIGRAM, DAY OF TREATMENT SEPARATED BY 14 REST DAYS
     Route: 040
  3. FLUOROURACIL. [Suspect]
     Active Substance: FLUOROURACIL
     Dosage: 400 MILLIGRAM/SQ. METER, DAY OF TREATMENT SEPARATED BY 14 REST DAYS, FOLFOX REGIMEN
     Route: 042
  4. OXALIPLATIN. [Suspect]
     Active Substance: OXALIPLATIN
     Indication: COLORECTAL CANCER METASTATIC
     Dosage: 85 MILLIGRAM/SQ. METER, IV
  5. FOLINIC ACID [Suspect]
     Active Substance: LEUCOVORIN
     Indication: COLORECTAL CANCER METASTATIC
     Dosage: 400 MILLIGRAM/SQ. METER, IV OVER 120 MINS, EVERY TWO WEEKS FOR 4 MONTHS
     Route: 042
  6. FLUOROURACIL. [Suspect]
     Active Substance: FLUOROURACIL
     Indication: COLORECTAL CANCER METASTATIC
     Dosage: 400 MILLIGRAM/SQ. METER, EVERY TWO WEEKS FOR 4 MONTHS, FOLFIRI REGIMEN
     Route: 040
  7. IRINOTECAN [Suspect]
     Active Substance: IRINOTECAN
     Indication: COLORECTAL CANCER METASTATIC
     Dosage: 180 MILLIGRAM/SQ. METER, IV OVER 90 MINS, EVERY TWO WEEKS FOR 4 MONTHS
     Route: 042
  8. FLUOROURACIL. [Suspect]
     Active Substance: FLUOROURACIL
     Dosage: 2400 MILLIGRAM/SQ. METER, CONTINUOUS IV OVER 46 HOURS, SEPARATED BY 14 DAYS, FOLFOX REGIMEN
     Route: 042

REACTIONS (2)
  - Treatment failure [Unknown]
  - Vascular pseudoaneurysm [Recovered/Resolved]
